FAERS Safety Report 17449670 (Version 2)
Quarter: 2020Q2

REPORT INFORMATION
  Report Type: Spontaneous
  Country: GB (occurrence: GB)
  Receive Date: 20200224
  Receipt Date: 20200514
  Transmission Date: 20200713
  Serious: Yes (Other)
  Sender: FDA-Public Use
  Company Number: GB-009507513-2002GBR007653

PATIENT
  Age: 59 Year
  Sex: Male

DRUGS (1)
  1. INTERFERON ALFA-2B [Suspect]
     Active Substance: INTERFERON ALFA-2B
     Dosage: UNK, RECEIVED FOR 1 YEARS

REACTIONS (1)
  - Neuromyelitis optica spectrum disorder [Unknown]
